FAERS Safety Report 14384475 (Version 2)
Quarter: 2018Q1

REPORT INFORMATION
  Report Type: Spontaneous
  Country: SE (occurrence: SE)
  Receive Date: 20180115
  Receipt Date: 20180228
  Transmission Date: 20180509
  Serious: Yes (Other)
  Sender: FDA-Public Use
  Company Number: SE-ORION CORPORATION ORION PHARMA-TREX2018-0105

PATIENT
  Age: 38 Year
  Sex: Female

DRUGS (4)
  1. INFLECTRA [Suspect]
     Active Substance: INFLIXIMAB-DYYB
     Indication: ANKYLOSING SPONDYLITIS
     Dosage: STRENGTH: 100 MG; 1 MG/ML 200 MG X1
     Route: 042
     Dates: start: 20170201, end: 20170718
  2. REMSIMA [Suspect]
     Active Substance: INFLIXIMAB
     Indication: ANKYLOSING SPONDYLITIS
     Dosage: WSA GIVEN ON TWO OCASSIONS; INTENSITY: 1 MG/ML
     Route: 065
     Dates: start: 20170104
  3. METHOTREXATE (TRADE NAME UNKNOWN) [Suspect]
     Active Substance: METHOTREXATE
     Indication: ANKYLOSING SPONDYLITIS
     Dosage: STRENGTH: 2.5 MG
     Route: 048
     Dates: start: 20161109, end: 20170719
  4. ORUDIS [Concomitant]
     Active Substance: KETOPROFEN
     Route: 065
     Dates: start: 20160407, end: 20170719

REACTIONS (1)
  - Autoimmune hepatitis [Not Recovered/Not Resolved]

NARRATIVE: CASE EVENT DATE: 20170522
